FAERS Safety Report 22135415 (Version 1)
Quarter: 2023Q1

REPORT INFORMATION
  Report Type: Report from Study
  Country: US (occurrence: US)
  Receive Date: 20230324
  Receipt Date: 20230324
  Transmission Date: 20230417
  Serious: No
  Sender: FDA-Public Use
  Company Number: US-002147023-NVSC2023US065106

PATIENT
  Weight: 93.44 kg

DRUGS (3)
  1. COSENTYX [Suspect]
     Active Substance: SECUKINUMAB
     Indication: Psoriasis
     Dosage: 300 MG
     Route: 058
  2. LOSARTAN POTASSIUM [Suspect]
     Active Substance: LOSARTAN POTASSIUM
     Indication: Psoriasis
     Dosage: UNK
     Route: 065
  3. MINOXIDIL [Suspect]
     Active Substance: MINOXIDIL
     Indication: Psoriasis
     Dosage: 5 %
     Route: 061

REACTIONS (11)
  - Alopecia [Unknown]
  - Hypertension [Recovering/Resolving]
  - Psoriasis [Unknown]
  - Dry skin [Unknown]
  - Rash [Unknown]
  - Pruritus [Unknown]
  - Erythema [Unknown]
  - Skin exfoliation [Unknown]
  - Skin plaque [Unknown]
  - Product use in unapproved indication [Unknown]
  - Treatment failure [Unknown]
